FAERS Safety Report 11069305 (Version 5)
Quarter: 2016Q4

REPORT INFORMATION
  Report Type: Spontaneous
  Country: SE (occurrence: SE)
  Receive Date: 20150427
  Receipt Date: 20161018
  Transmission Date: 20170206
  Serious: Yes (Congenital Anomaly)
  Sender: FDA-Public Use
  Company Number: SE-TEVA-557222ISR

PATIENT
  Sex: Male

DRUGS (5)
  1. BEHEPAN [Concomitant]
     Active Substance: HYDROXOCOBALAMIN
  2. FOLIC ACID. [Concomitant]
     Active Substance: FOLIC ACID
     Indication: DEPRESSION
  3. CITALOPRAM [Suspect]
     Active Substance: CITALOPRAM HYDROBROMIDE
     Indication: DEPRESSION
     Dosage: 20 MILLIGRAM DAILY;
     Route: 064
  4. MONOFER [Concomitant]
     Active Substance: IRON ISOMALTOSIDE 1000
  5. IMOVANE [Concomitant]
     Active Substance: ZOPICLONE

REACTIONS (2)
  - Talipes [Not Recovered/Not Resolved]
  - Foetal exposure during pregnancy [Not Recovered/Not Resolved]

NARRATIVE: CASE EVENT DATE: 20141017
